FAERS Safety Report 8633938 (Version 3)
Quarter: 2012Q4

REPORT INFORMATION
  Report Type: 
  Country: JP (occurrence: JP)
  Receive Date: 20120626
  Receipt Date: 20121228
  Transmission Date: 20130627
  Serious: Yes (Hospitalization)
  Sender: FDA-Public Use
  Company Number: JP-AMGEN-JPNSP2012038566

PATIENT
  Age: 96 Year
  Sex: Female
  Weight: 40 kg

DRUGS (21)
  1. NPLATE [Suspect]
     Indication: IDIOPATHIC THROMBOCYTOPENIC PURPURA
     Dosage: 1 mug/kg, qwk
     Route: 058
     Dates: start: 20120321
  2. NPLATE [Suspect]
     Route: 058
     Dates: start: 20120425
  3. NPLATE [Suspect]
     Route: 058
     Dates: start: 20120509
  4. NPLATE [Suspect]
     Dosage: 1.1 mug/kg, 1x/week
     Route: 058
     Dates: start: 20120321
  5. NPLATE [Suspect]
     Dosage: 2.2 mug/kg, 1x/week
     Route: 058
     Dates: start: 20120404
  6. NPLATE [Suspect]
     Dosage: 3.3 mug/kg, qd
     Route: 058
     Dates: start: 20120418
  7. NPLATE [Suspect]
     Dosage: 4.5 mug/kg, 1x/week
     Route: 058
     Dates: start: 20120425
  8. NPLATE [Suspect]
     Dosage: 7 mug/kg, qd
     Route: 058
     Dates: start: 20120516
  9. NPLATE [Suspect]
     Dosage: 4.5 mug/kg, 1x/2weeks
     Route: 058
     Dates: start: 20120801
  10. REVOLADE [Concomitant]
     Indication: PLATELET FUNCTION TEST ABNORMAL
     Dosage: 12.5 mg, qd
     Route: 048
     Dates: start: 20120704, end: 20120710
  11. REVOLADE [Concomitant]
     Dosage: 12.5 mg, UNK
     Route: 048
     Dates: start: 20120711, end: 20120715
  12. RIKKUNSHITO [Concomitant]
     Indication: GASTRITIS
     Route: 048
  13. PARIET [Concomitant]
     Indication: GASTRITIS
     Route: 048
  14. AMOBAN [Concomitant]
     Indication: INSOMNIA
     Route: 048
  15. ARTIST [Concomitant]
     Indication: CARDIAC FAILURE CONGESTIVE
     Route: 048
  16. BONALON 35MG [Concomitant]
     Indication: OSTEOPOROSIS
     Route: 048
  17. MOHRUS [Concomitant]
     Indication: THORACIC VERTEBRAL FRACTURE
     Route: 062
  18. MOHRUS [Concomitant]
     Indication: BACK PAIN
  19. SIGMART [Concomitant]
     Indication: CARDIAC FAILURE CONGESTIVE
     Route: 042
  20. HYALEIN [Concomitant]
     Indication: CATARACT
     Route: 031
  21. KARY UNI [Concomitant]
     Indication: CATARACT
     Route: 031

REACTIONS (1)
  - Arterial occlusive disease [Recovered/Resolved]
